FAERS Safety Report 5233944-1 (Version None)
Quarter: 2007Q1

REPORT INFORMATION
  Report Type: 
  Country: None (occurrence: None)
  Receive Date: 20070208
  Receipt Date: 20070201
  Transmission Date: 20070707
  Serious: Yes (Other)
  Sender: FDA-Public Use
  Company Number: 2007UW02210

PATIENT
  Age: 67 Year
  Sex: Female
  Weight: 67.1 kg

DRUGS (1)
  1. ZOMIG [Suspect]
     Indication: MIGRAINE
     Route: 048
     Dates: end: 20061201

REACTIONS (7)
  - AUTONOMIC NERVOUS SYSTEM IMBALANCE [None]
  - DISORIENTATION [None]
  - DIZZINESS [None]
  - HYPOAESTHESIA [None]
  - ILL-DEFINED DISORDER [None]
  - LOSS OF CONSCIOUSNESS [None]
  - REBOUND EFFECT [None]
